FAERS Safety Report 13208207 (Version 2)
Quarter: 2017Q3

REPORT INFORMATION
  Report Type: Spontaneous
  Country: US (occurrence: US)
  Receive Date: 20170209
  Receipt Date: 20170810
  Transmission Date: 20171127
  Serious: No
  Sender: FDA-Public Use
  Company Number: US-VIFOR (INTERNATIONAL) INC.-VIT-2017-01081

PATIENT
  Age: 56 Year
  Sex: Female
  Weight: 68.1 kg

DRUGS (17)
  1. CALCIUM ACETATE. [Concomitant]
     Active Substance: CALCIUM ACETATE
  2. RENVELA [Concomitant]
     Active Substance: SEVELAMER CARBONATE
  3. ERGOCALCIFEROL. [Concomitant]
     Active Substance: ERGOCALCIFEROL
  4. DOCUSATE SODIUM. [Concomitant]
     Active Substance: DOCUSATE SODIUM
  5. CRESTOR [Concomitant]
     Active Substance: ROSUVASTATIN CALCIUM
  6. TRADJENTA [Concomitant]
     Active Substance: LINAGLIPTIN
  7. VELTASSA [Suspect]
     Active Substance: PATIROMER
     Indication: HYPERKALAEMIA
     Dates: start: 201608
  8. FUROSEMIDE. [Concomitant]
     Active Substance: FUROSEMIDE
  9. LANTUS [Concomitant]
     Active Substance: INSULIN GLARGINE
  10. RENE-VITE [Concomitant]
  11. SENSIPAR [Concomitant]
     Active Substance: CINACALCET HYDROCHLORIDE
  12. SERTRALINE HYDROCHLORIDE. [Concomitant]
     Active Substance: SERTRALINE HYDROCHLORIDE
  13. CARVEDILOL. [Concomitant]
     Active Substance: CARVEDILOL
  14. LEVEMIR [Concomitant]
     Active Substance: INSULIN DETEMIR
  15. PARACETAMOL [Concomitant]
     Active Substance: ACETAMINOPHEN
  16. HUMALOG MIX50/50 [Concomitant]
     Active Substance: INSULIN LISPRO
  17. NIFEDIPINE. [Concomitant]
     Active Substance: NIFEDIPINE

REACTIONS (1)
  - Dry mouth [Not Recovered/Not Resolved]

NARRATIVE: CASE EVENT DATE: 201611
